FAERS Safety Report 25998023 (Version 2)
Quarter: 2025Q4

REPORT INFORMATION
  Report Type: Report from Study
  Country: US (occurrence: US)
  Receive Date: 20251105
  Receipt Date: 20251114
  Transmission Date: 20260118
  Serious: Yes (Death)
  Sender: BIOGEN
  Company Number: US-BIOGEN-2088947

PATIENT
  Age: 52 Year
  Sex: Male

DRUGS (1)
  1. TYSABRI [Suspect]
     Active Substance: NATALIZUMAB
     Indication: Product used for unknown indication
     Dates: start: 20140416, end: 20250718

REACTIONS (1)
  - Death [Fatal]

NARRATIVE: CASE EVENT DATE: 20250904
